FAERS Safety Report 9770064 (Version 1)
Quarter: 2013Q4

REPORT INFORMATION
  Report Type: Spontaneous
  Country: US (occurrence: US)
  Receive Date: 20131218
  Receipt Date: 20131218
  Transmission Date: 20140711
  Serious: No
  Sender: FDA-Public Use
  Company Number: US-VERTEX PHARMACEUTICALS INC-AE-2011-000934

PATIENT
  Age: 61 Year
  Sex: Male
  Weight: 70.46 kg

DRUGS (6)
  1. INCIVEK [Suspect]
     Indication: HEPATITIS C
     Route: 048
     Dates: start: 20110812
  2. RIBASPHERE [Concomitant]
     Indication: HEPATITIS C
     Route: 048
     Dates: start: 20110812
  3. PEGUS 2 A [Concomitant]
     Indication: HEPATITIS C
     Route: 058
     Dates: start: 20110812
  4. LOSARTAN [Concomitant]
     Indication: HYPERTENSION
     Route: 048
  5. LEXAPRO [Concomitant]
     Indication: DEPRESSION
     Route: 048
     Dates: start: 20110812
  6. ATIVAN [Concomitant]
     Indication: INSOMNIA
     Route: 048

REACTIONS (4)
  - Proctalgia [Not Recovered/Not Resolved]
  - Anal haemorrhage [Not Recovered/Not Resolved]
  - Anorectal discomfort [Not Recovered/Not Resolved]
  - Diarrhoea [Not Recovered/Not Resolved]
